FAERS Safety Report 12855302 (Version 1)
Quarter: 2016Q4

REPORT INFORMATION
  Report Type: Spontaneous
  Country: IT (occurrence: IT)
  Receive Date: 20161017
  Receipt Date: 20161017
  Transmission Date: 20170207
  Serious: Yes (Other)
  Sender: FDA-Public Use
  Company Number: IT-GILEAD-2016-0238282

PATIENT
  Age: 51 Year
  Sex: Male

DRUGS (7)
  1. TRUVADA [Suspect]
     Active Substance: EMTRICITABINE\TENOFOVIR DISOPROXIL FUMARATE
     Indication: HIV INFECTION
     Dosage: UNK
     Route: 048
     Dates: start: 20110721, end: 20150413
  2. FOLINA                             /00024201/ [Concomitant]
     Active Substance: FOLIC ACID
     Dosage: UNK
  3. TOTALIP [Concomitant]
     Active Substance: ATORVASTATIN
     Dosage: UNK
  4. PLAVIX [Concomitant]
     Active Substance: CLOPIDOGREL BISULFATE
     Dosage: UNK
  5. CELSENTRI [Concomitant]
     Active Substance: MARAVIROC
     Dosage: UNK
  6. REYATAZ [Concomitant]
     Active Substance: ATAZANAVIR SULFATE
     Dosage: UNK
  7. NORVIR [Concomitant]
     Active Substance: RITONAVIR
     Dosage: UNK

REACTIONS (1)
  - Osteoporosis [Recovering/Resolving]

NARRATIVE: CASE EVENT DATE: 20150413
